FAERS Safety Report 9422756 (Version 1)
Quarter: 2013Q3

REPORT INFORMATION
  Report Type: Spontaneous
  Country: US (occurrence: None)
  Receive Date: 20130724
  Receipt Date: 20130724
  Transmission Date: 20140515
  Serious: Yes (Other)
  Sender: FDA-Public Use
  Company Number: 2013P1013063

PATIENT
  Age: 58 Year
  Sex: Female

DRUGS (2)
  1. HYDROXYCHLOROQUINE [Suspect]
     Indication: CONNECTIVE TISSUE DISORDER
  2. PREDNISONE [Concomitant]

REACTIONS (1)
  - Myopathy [None]
